FAERS Safety Report 5082282-9 (Version None)
Quarter: 2006Q3

REPORT INFORMATION
  Report Type: 
  Country: None (occurrence: None)
  Receive Date: 20060814
  Receipt Date: 20060802
  Transmission Date: 20061208
  Serious: Yes (Life-Threatening)
  Sender: FDA-Public Use
  Company Number: HQWYE842103AUG06

PATIENT
  Age: 65 Year
  Sex: Male

DRUGS (13)
  1. PROTONIX [Suspect]
     Indication: GASTROOESOPHAGEAL REFLUX DISEASE
     Dosage: SEE IMAGE
     Route: 048
     Dates: start: 20060101, end: 20060101
  2. PROTONIX [Suspect]
     Indication: GASTROOESOPHAGEAL REFLUX DISEASE
     Dosage: SEE IMAGE
     Route: 048
     Dates: start: 20060801, end: 20060801
  3. CELEXA [Concomitant]
  4. PROSCAR [Concomitant]
  5. ZOCOR [Concomitant]
  6. RITALIN [Concomitant]
  7. LACTULOSE [Concomitant]
  8. CIPRO [Concomitant]
  9. FLONASE [Concomitant]
  10. MOBIC [Concomitant]
  11. BENICAR [Concomitant]
  12. SINGULAIR [Concomitant]
  13. LASIX [Concomitant]

REACTIONS (6)
  - DRUG HYPERSENSITIVITY [None]
  - DYSPNOEA [None]
  - PRURITUS [None]
  - RASH GENERALISED [None]
  - SYNCOPE [None]
  - THROAT TIGHTNESS [None]
